FAERS Safety Report 8037120-9 (Version None)
Quarter: 2012Q1

REPORT INFORMATION
  Report Type: 
  Country: None (occurrence: None)
  Receive Date: 20120111
  Receipt Date: 20120109
  Transmission Date: 20120608
  Serious: Yes (Other)
  Sender: FDA-Public Use
  Company Number: US-PFIZER INC-2012006890

PATIENT
  Sex: Male
  Weight: 74.83 kg

DRUGS (4)
  1. LIPITOR [Suspect]
     Indication: VASCULAR GRAFT
     Dosage: 40 MG, 1X/DAY
     Route: 048
     Dates: start: 19990101
  2. ALLEGRA [Concomitant]
     Dosage: 180 MG, 1X/DAY
  3. SIMVASTATIN [Suspect]
     Dosage: 40 MG, 1X/DAY
     Dates: start: 20110101, end: 20110131
  4. ATENOLOL [Concomitant]
     Dosage: UNK

REACTIONS (7)
  - URTICARIA [None]
  - SWELLING FACE [None]
  - MUSCULAR WEAKNESS [None]
  - SWOLLEN TONGUE [None]
  - DRUG HYPERSENSITIVITY [None]
  - PRURITUS [None]
  - WEIGHT DECREASED [None]
